FAERS Safety Report 15395352 (Version 2)
Quarter: 2018Q4

REPORT INFORMATION
  Report Type: Report from Study
  Country: US (occurrence: US)
  Receive Date: 20180918
  Receipt Date: 20181019
  Transmission Date: 20190204
  Serious: Yes (Other)
  Sender: FDA-Public Use
  Company Number: US-ASTELLAS-2018US040563

PATIENT
  Sex: Female

DRUGS (1)
  1. MIRABEGRON [Suspect]
     Active Substance: MIRABEGRON
     Indication: URINARY INCONTINENCE
     Dosage: UNK, UNKNOWN FREQ.
     Route: 048

REACTIONS (8)
  - Treatment noncompliance [Unknown]
  - Bladder disorder [Unknown]
  - General physical health deterioration [Unknown]
  - Product use in unapproved indication [Unknown]
  - Urinary incontinence [Unknown]
  - Gait inability [Unknown]
  - Musculoskeletal disorder [Unknown]
  - Arthritis [Unknown]
